FAERS Safety Report 7491135-8 (Version None)
Quarter: 2011Q2

REPORT INFORMATION
  Report Type: 
  Country: None (occurrence: None)
  Receive Date: 20110519
  Receipt Date: 20110511
  Transmission Date: 20111010
  Serious: Yes (Other)
  Sender: FDA-Public Use
  Company Number: US-SANOFI-AVENTIS-2011SA021829

PATIENT
  Age: 70 Year
  Sex: Male
  Weight: 100 kg

DRUGS (10)
  1. LISINOPRIL [Concomitant]
     Route: 065
  2. HUMALOG [Concomitant]
     Dosage: 20 UNITS IN THE MORNING AND 20 UNITS AT LUNCH AND 25 UNITS AT BEDTIME
  3. PLAVIX [Concomitant]
     Route: 065
  4. CARDIAC THERAPY [Concomitant]
  5. ANTIHYPERTENSIVES [Concomitant]
  6. FENOFIBRATE [Concomitant]
     Route: 065
  7. NIASPAN [Concomitant]
     Route: 065
  8. VYTORIN [Concomitant]
     Dosage: 10/80 MG
  9. LANTUS [Suspect]
     Indication: TYPE 2 DIABETES MELLITUS
     Dosage: DOSE:55 UNIT(S)
     Route: 058
     Dates: start: 19950915
  10. METOPROLOL TARTRATE [Concomitant]

REACTIONS (1)
  - CARDIAC OPERATION [None]
